FAERS Safety Report 11812091 (Version 5)
Quarter: 2016Q2

REPORT INFORMATION
  Report Type: Report from Study
  Country: AR (occurrence: AR)
  Receive Date: 20151208
  Receipt Date: 20160503
  Transmission Date: 20160815
  Serious: Yes (Life-Threatening, Hospitalization, Other)
  Sender: FDA-Public Use
  Company Number: AR-BRISTOL-MYERS SQUIBB COMPANY-BMS-2015-038906

PATIENT
  Age: 76 Year
  Sex: Male

DRUGS (10)
  1. BELATACEPT [Suspect]
     Active Substance: BELATACEPT
     Indication: RENAL TRANSPLANT
     Dosage: UNK, Q4WK
     Route: 065
     Dates: start: 20150304, end: 201508
  2. BELATACEPT [Suspect]
     Active Substance: BELATACEPT
     Dosage: UNK, Q4WK
     Route: 065
     Dates: start: 20150309
  3. BELATACEPT [Suspect]
     Active Substance: BELATACEPT
     Dosage: UNK, Q4WK
     Route: 065
     Dates: start: 20150611
  4. BELATACEPT [Suspect]
     Active Substance: BELATACEPT
     Dosage: UNK, Q4WK
     Route: 065
     Dates: start: 20150730
  5. BELATACEPT [Suspect]
     Active Substance: BELATACEPT
     Dosage: UNK, Q4WK
     Route: 065
     Dates: start: 20151005
  6. BELATACEPT [Suspect]
     Active Substance: BELATACEPT
     Dosage: UNK, Q4WK
     Route: 065
     Dates: start: 20150401
  7. BELATACEPT [Suspect]
     Active Substance: BELATACEPT
     Dosage: UNK, Q4WK
     Route: 065
     Dates: start: 20150702
  8. BELATACEPT [Suspect]
     Active Substance: BELATACEPT
     Dosage: UNK, Q4WK
     Route: 065
     Dates: start: 20150320
  9. BELATACEPT [Suspect]
     Active Substance: BELATACEPT
     Dosage: UNK, Q4WK
     Route: 065
     Dates: start: 20150505
  10. PREGABALINE [Suspect]
     Active Substance: PREGABALIN
     Indication: PRODUCT USED FOR UNKNOWN INDICATION
     Route: 065

REACTIONS (9)
  - Loss of consciousness [Recovered/Resolved]
  - Arrhythmia [Recovered/Resolved]
  - Hypotension [Recovered/Resolved]
  - Anaphylactic shock [Recovered/Resolved]
  - Varicella [Recovered/Resolved]
  - Abasia [Recovering/Resolving]
  - Cardiac failure [Unknown]
  - Septic shock [Unknown]
  - Respiratory failure [Unknown]

NARRATIVE: CASE EVENT DATE: 20150531
